FAERS Safety Report 6095757-0 (Version None)
Quarter: 2009Q1

REPORT INFORMATION
  Report Type: 
  Country: None (occurrence: None)
  Receive Date: 20090227
  Receipt Date: 20080610
  Transmission Date: 20090719
  Serious: No
  Sender: FDA-Public Use
  Company Number: A0732248A

PATIENT
  Age: 33 Year
  Sex: Female

DRUGS (2)
  1. LAMICTAL [Suspect]
     Indication: DRUG USE FOR UNKNOWN INDICATION
     Route: 048
     Dates: start: 20020101
  2. FOLIC ACID [Concomitant]

REACTIONS (3)
  - ANTICONVULSANT DRUG LEVEL DECREASED [None]
  - DRUG EXPOSURE DURING PREGNANCY [None]
  - GLUCOSE TOLERANCE IMPAIRED [None]
